FAERS Safety Report 5332338-8 (Version None)
Quarter: 2007Q2

REPORT INFORMATION
  Report Type: 
  Country: None (occurrence: None)
  Receive Date: 20070523
  Receipt Date: 20070521
  Transmission Date: 20071010
  Serious: Yes (Death, Life-Threatening, Hospitalization, Disabling, Other)
  Sender: FDA-Public Use
  Company Number: A0649575A

PATIENT
  Age: 25 Year
  Sex: Male

DRUGS (6)
  1. FOSAMPRENAVIR [Suspect]
     Indication: HIV INFECTION
     Dosage: 1400MG PER DAY
     Route: 048
     Dates: start: 20070201, end: 20070201
  2. LAMIVUDINE [Concomitant]
     Indication: HIV INFECTION
     Dates: start: 20070201, end: 20070201
  3. ZIDOVUDINE [Concomitant]
     Indication: HIV INFECTION
     Dates: start: 20070201, end: 20070201
  4. RITONAVIR [Concomitant]
     Indication: HIV INFECTION
     Dates: start: 20070201, end: 20070201
  5. PYRIMETHAMINE TAB [Concomitant]
     Dates: start: 20070101, end: 20070201
  6. SULFADIAZINE [Concomitant]
     Dates: start: 20070101, end: 20070201

REACTIONS (5)
  - EXFOLIATIVE RASH [None]
  - MULTI-ORGAN FAILURE [None]
  - RASH GENERALISED [None]
  - RENAL FAILURE [None]
  - STEVENS-JOHNSON SYNDROME [None]
